FAERS Safety Report 20973268 (Version 1)
Quarter: 2022Q2

REPORT INFORMATION
  Report Type: Spontaneous
  Country: US (occurrence: US)
  Receive Date: 20220617
  Receipt Date: 20220617
  Transmission Date: 20220720
  Serious: No
  Sender: FDA-Public Use
  Company Number: US-ENDO PHARMACEUTICALS INC-2021-013508

PATIENT
  Sex: Male

DRUGS (6)
  1. SUPPRELIN LA [Suspect]
     Active Substance: HISTRELIN ACETATE
     Indication: Silver-Russell syndrome
     Dosage: UNK UNKNOWN, UNKNOWN
     Route: 065
     Dates: start: 202110
  2. SUPPRELIN LA [Suspect]
     Active Substance: HISTRELIN ACETATE
     Indication: Silver-Russell syndrome
     Dosage: UNK UNKNOWN, UNKNOWN
     Route: 065
     Dates: start: 202110
  3. SUPPRELIN LA [Suspect]
     Active Substance: HISTRELIN ACETATE
     Indication: Precocious puberty
     Dosage: UNK UNKNOWN, UNKNOWN
     Route: 065
     Dates: start: 202108
  4. SUPPRELIN LA [Suspect]
     Active Substance: HISTRELIN ACETATE
     Indication: Precocious puberty
     Dosage: UNK UNKNOWN, UNKNOWN
     Route: 065
     Dates: start: 202108
  5. NORDITROPIN [Concomitant]
     Active Substance: SOMATROPIN
     Indication: Acquired growth hormone resistance
     Dosage: 1.2 MG, QHS (DAILY)
     Route: 058
  6. NORDITROPIN [Concomitant]
     Active Substance: SOMATROPIN
     Indication: Small for dates baby

REACTIONS (5)
  - Infection [Recovered/Resolved]
  - Implant site erythema [Recovered/Resolved]
  - Off label use [Not Recovered/Not Resolved]
  - Device dislocation [None]
  - Device expulsion [None]

NARRATIVE: CASE EVENT DATE: 20210101
